FAERS Safety Report 17667252 (Version 10)
Quarter: 2025Q4

REPORT INFORMATION
  Report Type: Spontaneous
  Country: US (occurrence: US)
  Receive Date: 20200414
  Receipt Date: 20251204
  Transmission Date: 20260118
  Serious: Yes (Other)
  Sender: PFIZER
  Company Number: US-PFIZER INC-2019468541

PATIENT
  Age: 72 Year
  Sex: Male

DRUGS (4)
  1. XELJANZ [Suspect]
     Active Substance: TOFACITINIB CITRATE
     Indication: Rheumatoid arthritis
     Dosage: 10 MG, 2X/DAY
  2. XELJANZ [Suspect]
     Active Substance: TOFACITINIB CITRATE
     Indication: Colitis ulcerative
     Dosage: 5MG PO (PER ORAL) BID (TWICE A DAY)
     Route: 048
  3. XELJANZ [Suspect]
     Active Substance: TOFACITINIB CITRATE
     Dosage: 5MG PO QD
     Route: 048
  4. XELJANZ [Suspect]
     Active Substance: TOFACITINIB CITRATE
     Dosage: TABLET 1 TABLET ORALLY TWICE A DAY
     Route: 048

REACTIONS (6)
  - Brain death [Unknown]
  - Procedural pain [Unknown]
  - Mean cell volume increased [Unknown]
  - Off label use [Unknown]
  - Product prescribing error [Unknown]
  - Incorrect dose administered [Unknown]
